FAERS Safety Report 9346426 (Version 1)
Quarter: 2013Q2

REPORT INFORMATION
  Report Type: Spontaneous
  Country: FI (occurrence: FI)
  Receive Date: 20130613
  Receipt Date: 20130613
  Transmission Date: 20140414
  Serious: Yes (Hospitalization)
  Sender: FDA-Public Use
  Company Number: FI-UCBSA-087829

PATIENT
  Age: 72 Year
  Sex: Male

DRUGS (5)
  1. CIMZIA [Suspect]
     Indication: RHEUMATOID ARTHRITIS
     Route: 058
     Dates: start: 20120705, end: 20130329
  2. METHOTREXATE PFIZER [Concomitant]
     Indication: RHEUMATOID ARTHRITIS
     Route: 058
     Dates: start: 201110, end: 20130329
  3. TRAMAL [Concomitant]
     Indication: PAIN
     Route: 048
     Dates: start: 201110
  4. PREDNISOLON [Concomitant]
     Indication: RHEUMATOID ARTHRITIS
     Dosage: DRUG STRENGTH :-5MG
     Route: 048
     Dates: start: 201110
  5. SOMAC [Concomitant]
     Indication: GASTRITIS PROPHYLAXIS
     Route: 048
     Dates: start: 201110

REACTIONS (2)
  - Sarcomatoid mesothelioma [Unknown]
  - Pleural effusion [Unknown]
